FAERS Safety Report 8812559 (Version 1)
Quarter: 2012Q4

REPORT INFORMATION
  Report Type: 
  Country: DO (occurrence: DO)
  Receive Date: 20120927
  Receipt Date: 20120927
  Transmission Date: 20130627
  Serious: Yes (Death, Hospitalization)
  Sender: FDA-Public Use
  Company Number: PHHO2004DO07886

PATIENT
  Age: 43 Year
  Sex: Female
  Weight: 65.76 kg

DRUGS (1)
  1. GLIVEC [Suspect]
     Indication: CHRONIC MYELOID LEUKAEMIA
     Dates: start: 20040218

REACTIONS (3)
  - Hypovolaemic shock [Fatal]
  - Vaginal haemorrhage [Fatal]
  - Blast crisis in myelogenous leukaemia [Fatal]
